FAERS Safety Report 13953064 (Version 2)
Quarter: 2017Q3

REPORT INFORMATION
  Report Type: Spontaneous
  Country: US (occurrence: US)
  Receive Date: 20170911
  Receipt Date: 20170911
  Transmission Date: 20171128
  Serious: No
  Sender: FDA-Public Use
  Company Number: US-TEVA-793167ACC

PATIENT
  Sex: Female

DRUGS (1)
  1. RISEDRONIC ACID [Suspect]
     Active Substance: RISEDRONIC ACID
     Indication: OSTEOPOROSIS
     Dates: start: 201611, end: 20170529

REACTIONS (7)
  - Hypoaesthesia [Not Recovered/Not Resolved]
  - Hypoaesthesia eye [Unknown]
  - Hypoaesthesia oral [Unknown]
  - Paraesthesia [Not Recovered/Not Resolved]
  - Paraesthesia oral [Unknown]
  - Pain [Unknown]
  - Nausea [Unknown]
